FAERS Safety Report 17923838 (Version 4)
Quarter: 2020Q3

REPORT INFORMATION
  Report Type: Spontaneous
  Country: US (occurrence: US)
  Receive Date: 20200622
  Receipt Date: 20200713
  Transmission Date: 20201103
  Serious: No
  Sender: FDA-Public Use
  Company Number: US-GLAXOSMITHKLINE-US2020AMR103623

PATIENT
  Sex: Female

DRUGS (7)
  1. ZEJULA [Suspect]
     Active Substance: NIRAPARIB
     Indication: OVARIAN CANCER
     Dosage: 200 MG, QD
     Route: 065
     Dates: start: 20200603
  2. CLARITINE [Concomitant]
     Active Substance: LORATADINE
     Indication: PRODUCT USED FOR UNKNOWN INDICATION
     Dosage: UNK
  3. LETROZOLE. [Concomitant]
     Active Substance: LETROZOLE
     Indication: PRODUCT USED FOR UNKNOWN INDICATION
     Dosage: UNK
  4. FOLIC ACID. [Concomitant]
     Active Substance: FOLIC ACID
     Indication: PRODUCT USED FOR UNKNOWN INDICATION
     Dosage: UNK
  5. ZEJULA [Suspect]
     Active Substance: NIRAPARIB
     Dosage: 200 MG, QD
     Route: 065
  6. FERROUS SULFATE. [Concomitant]
     Active Substance: FERROUS SULFATE
     Indication: PRODUCT USED FOR UNKNOWN INDICATION
     Dosage: UNK
  7. IRON [Concomitant]
     Active Substance: IRON
     Indication: PRODUCT USED FOR UNKNOWN INDICATION
     Dosage: UNK

REACTIONS (22)
  - Abdominal pain [Unknown]
  - Nocturia [Unknown]
  - Eructation [Unknown]
  - Myalgia [Unknown]
  - Burning sensation [Unknown]
  - Constipation [Recovering/Resolving]
  - Poor quality sleep [Unknown]
  - Condition aggravated [Unknown]
  - Weight decreased [Unknown]
  - Insomnia [Unknown]
  - Retching [Unknown]
  - Flatulence [Unknown]
  - Nausea [Not Recovered/Not Resolved]
  - Change of bowel habit [Unknown]
  - Muscle spasms [Unknown]
  - Feeding disorder [Recovering/Resolving]
  - Pruritus [Unknown]
  - Faeces hard [Unknown]
  - Vomiting [Unknown]
  - Diarrhoea [Unknown]
  - Headache [Not Recovered/Not Resolved]
  - Decreased appetite [Unknown]
